FAERS Safety Report 7304042-8 (Version None)
Quarter: 2011Q1

REPORT INFORMATION
  Report Type: 
  Country: None (occurrence: None)
  Receive Date: 20110221
  Receipt Date: 20110208
  Transmission Date: 20110831
  Serious: Yes (Hospitalization)
  Sender: FDA-Public Use
  Company Number: PHHY2011FR11030

PATIENT
  Sex: Female

DRUGS (3)
  1. EXELON [Suspect]
     Dosage: 4.6 MG, UNK
     Route: 062
     Dates: start: 20100512, end: 20110119
  2. ZOPICLONE [Concomitant]
     Dosage: UNK, DAILY
     Route: 048
     Dates: start: 20100101
  3. CITALOPRAM [Concomitant]
     Dosage: UNK
     Route: 048
     Dates: start: 20100101

REACTIONS (2)
  - AGGRESSION [None]
  - ABNORMAL BEHAVIOUR [None]
